FAERS Safety Report 8772747 (Version 1)
Quarter: 2012Q4

REPORT INFORMATION
  Report Type: Report from Study
  Country: US (occurrence: US)
  Receive Date: 20120907
  Receipt Date: 20120907
  Transmission Date: 20130627
  Serious: Yes (Hospitalization)
  Sender: FDA-Public Use
  Company Number: US-ROCHE-1112362

PATIENT
  Age: 56 Year
  Sex: Male
  Weight: 83.99 kg

DRUGS (4)
  1. MABTHERA [Suspect]
     Indication: WEGENER^S GRANULOMATOSIS
     Route: 042
     Dates: start: 20120821
  2. MABTHERA [Suspect]
     Route: 042
     Dates: start: 20120828
  3. PREDNISONE [Concomitant]
  4. AZATHIOPRINE [Concomitant]

REACTIONS (7)
  - Blood glucose increased [Unknown]
  - Renal function test abnormal [Unknown]
  - Tremor [Unknown]
  - Swelling face [Unknown]
  - Oedema peripheral [Unknown]
  - Syncope [Unknown]
  - Dyspnoea [Unknown]
